FAERS Safety Report 4322619-9 (Version None)
Quarter: 2004Q1

REPORT INFORMATION
  Report Type: 
  Country: None (occurrence: None)
  Receive Date: 20040324
  Receipt Date: 19970620
  Transmission Date: 20041129
  Serious: Yes (Hospitalization)
  Sender: FDA-Public Use
  Company Number: WAES 97066117

PATIENT
  Age: 59 Year
  Sex: Female
  Weight: 87 kg

DRUGS (2)
  1. PREDNISONE [Concomitant]
     Route: 048
     Dates: start: 19960326, end: 19960327
  2. THIABENDAZOLE [Suspect]
     Indication: TOXOCARIASIS
     Route: 048
     Dates: start: 19960326, end: 19960327

REACTIONS (3)
  - HEADACHE [None]
  - SOMNOLENCE [None]
  - VERTIGO [None]
